FAERS Safety Report 13745107 (Version 1)
Quarter: 2017Q3

REPORT INFORMATION
  Report Type: Spontaneous
  Country: US (occurrence: US)
  Receive Date: 20170712
  Receipt Date: 20170712
  Transmission Date: 20171127
  Serious: Yes (Other)
  Sender: FDA-Public Use
  Company Number: US-AMGEN-USASP2017103800

PATIENT
  Age: 67 Year
  Sex: Female

DRUGS (1)
  1. ENBREL [Suspect]
     Active Substance: ETANERCEPT
     Indication: UNDIFFERENTIATED CONNECTIVE TISSUE DISEASE
     Dosage: 50 MG, QWK
     Route: 065

REACTIONS (8)
  - Off label use [Unknown]
  - Drug dose omission [Unknown]
  - Chronic obstructive pulmonary disease [Recovering/Resolving]
  - Malaise [Recovering/Resolving]
  - Pain [Recovering/Resolving]
  - Autoimmune disorder [Recovering/Resolving]
  - Product storage error [Unknown]
  - Mobility decreased [Recovering/Resolving]

NARRATIVE: CASE EVENT DATE: 20170702
